FAERS Safety Report 16894218 (Version 3)
Quarter: 2020Q1

REPORT INFORMATION
  Report Type: Report from Study
  Country: MY (occurrence: MY)
  Receive Date: 20191008
  Receipt Date: 20200211
  Transmission Date: 20200409
  Serious: Yes (Death, Life-Threatening, Hospitalization, Other)
  Sender: FDA-Public Use
  Company Number: MY-ASTELLAS-2019US030467

PATIENT
  Age: 50 Year
  Sex: Female
  Weight: 45 kg

DRUGS (3)
  1. ASP2215 [Suspect]
     Active Substance: GILTERITINIB
     Indication: ACUTE MYELOID LEUKAEMIA
     Route: 048
     Dates: start: 20190624, end: 20190804
  2. ASP2215 [Suspect]
     Active Substance: GILTERITINIB
     Indication: TYROSINE KINASE MUTATION
     Route: 048
     Dates: start: 20190805, end: 20190909
  3. ASP2215 [Suspect]
     Active Substance: GILTERITINIB
     Route: 048
     Dates: start: 20190910, end: 20191028

REACTIONS (12)
  - Neutropenia [Not Recovered/Not Resolved]
  - Thrombocytopenia [Not Recovered/Not Resolved]
  - Neutropenia [Not Recovered/Not Resolved]
  - Epistaxis [Recovered/Resolved]
  - Anaemia [Not Recovered/Not Resolved]
  - Leukopenia [Not Recovered/Not Resolved]
  - Anaemia [Not Recovered/Not Resolved]
  - Skin infection [Recovering/Resolving]
  - Sepsis [Fatal]
  - Epistaxis [Recovered/Resolved]
  - Dermatitis bullous [Recovering/Resolving]
  - Epistaxis [Recovered/Resolved]

NARRATIVE: CASE EVENT DATE: 20190624
